FAERS Safety Report 10787685 (Version 1)
Quarter: 2015Q1

REPORT INFORMATION
  Report Type: Spontaneous
  Country: CH (occurrence: CH)
  Receive Date: 20150212
  Receipt Date: 20150212
  Transmission Date: 20150721
  Serious: Yes (Other)
  Sender: FDA-Public Use
  Company Number: CH-BIOGENIDEC-2014BI128901

PATIENT
  Age: 23 Year
  Sex: Male
  Weight: 130 kg

DRUGS (3)
  1. TYSABRI [Suspect]
     Active Substance: NATALIZUMAB
     Indication: MULTIPLE SCLEROSIS
     Route: 042
     Dates: start: 20141008
  2. TYSABRI [Suspect]
     Active Substance: NATALIZUMAB
     Indication: MULTIPLE SCLEROSIS
     Route: 042
     Dates: start: 20141105, end: 20141105
  3. XENICAL [Concomitant]
     Active Substance: ORLISTAT
     Indication: OBESITY
     Route: 048

REACTIONS (8)
  - Rash pruritic [Recovered/Resolved]
  - Dyspnoea [Recovered/Resolved]
  - Tension [Recovered/Resolved]
  - Hypersensitivity [Recovered/Resolved]
  - Headache [Recovered/Resolved]
  - Restlessness [Recovered/Resolved]
  - Respiratory distress [Recovered/Resolved]
  - Urticaria [Recovered/Resolved]

NARRATIVE: CASE EVENT DATE: 20141105
